FAERS Safety Report 8301856-2 (Version None)
Quarter: 2012Q2

REPORT INFORMATION
  Report Type: 
  Country: None (occurrence: None)
  Receive Date: 20120417
  Receipt Date: 20120403
  Transmission Date: 20120825
  Serious: Yes (Other)
  Sender: FDA-Public Use
  Company Number: JPI-P-020736

PATIENT
  Age: 65 Year
  Sex: Female

DRUGS (2)
  1. XYREM [Suspect]
     Indication: CATAPLEXY
     Dosage: ORAL, 4.5 GM (2.25 GM, 2 IN 1 D), ORAL
     Route: 048
     Dates: start: 20120101
  2. XYREM [Suspect]
     Indication: CATAPLEXY
     Dosage: ORAL, 4.5 GM (2.25 GM, 2 IN 1 D), ORAL
     Route: 048
     Dates: start: 20120330, end: 20120101

REACTIONS (9)
  - CONVULSION [None]
  - COLD SWEAT [None]
  - INFLUENZA LIKE ILLNESS [None]
  - DIZZINESS [None]
  - ANXIETY [None]
  - VISION BLURRED [None]
  - SENSORY DISTURBANCE [None]
  - FEELING JITTERY [None]
  - FEELING ABNORMAL [None]
